FAERS Safety Report 20439284 (Version 2)
Quarter: 2022Q1

REPORT INFORMATION
  Report Type: Report from Study
  Country: AU (occurrence: AU)
  Receive Date: 20220207
  Receipt Date: 20220223
  Transmission Date: 20220423
  Serious: Yes (Hospitalization, Other)
  Sender: FDA-Public Use
  Company Number: AU-BRISTOL-MYERS SQUIBB COMPANY-BMS-2022-016237

PATIENT
  Age: 79 Year
  Sex: Female
  Weight: 69.8 kg

DRUGS (10)
  1. NIVOLUMAB [Suspect]
     Active Substance: NIVOLUMAB
     Indication: Gastrooesophageal cancer
     Dosage: 240 MILLIGRAM 14 DAYS
     Route: 042
     Dates: start: 20211222
  2. REGORAFENIB [Suspect]
     Active Substance: REGORAFENIB
     Indication: Gastrooesophageal cancer
     Dosage: 90 MILLIGRAM 13 DAYS
     Route: 048
     Dates: start: 20211222, end: 20220104
  3. AMITRIPTYLINE [Concomitant]
     Active Substance: AMITRIPTYLINE
     Indication: Gastrooesophageal cancer
     Dosage: 10 MILLIGRAM, QD
     Route: 048
     Dates: start: 20210101
  4. PREGABALIN [Concomitant]
     Active Substance: PREGABALIN
     Indication: Gastrooesophageal cancer
     Dosage: 75 MILLIGRAM, BID
     Route: 048
     Dates: start: 20210101
  5. PENICILLIN G [Concomitant]
     Active Substance: PENICILLIN G
     Indication: Product used for unknown indication
     Dosage: 1200 MILLIGRAM, QID
     Route: 042
     Dates: start: 20220104, end: 20220105
  6. CEFTRIAXONE [Concomitant]
     Active Substance: CEFTRIAXONE
     Indication: Product used for unknown indication
     Dosage: 1 GRAM, QD
     Route: 042
     Dates: start: 20220105, end: 20220107
  7. DOXYCYCLINE [Concomitant]
     Active Substance: DOXYCYCLINE
     Indication: Product used for unknown indication
     Dosage: 100 MILLIGRAM, BID
     Route: 048
     Dates: start: 20220104, end: 20220105
  8. AZITHROMYCIN [Concomitant]
     Active Substance: AZITHROMYCIN
     Indication: Product used for unknown indication
     Dosage: 500 MILLIGRAM, QD
     Route: 048
     Dates: start: 20220105, end: 20220108
  9. AMOXYCILLIN [AMOXICILLIN] [Concomitant]
     Indication: Product used for unknown indication
     Dosage: 1 GRAM, TID
     Route: 048
     Dates: start: 20220108, end: 20220114
  10. PANTOPRAZOLE [Concomitant]
     Active Substance: PANTOPRAZOLE
     Indication: Product used for unknown indication
     Dosage: 20 MILLIGRAM, QD
     Route: 048
     Dates: start: 20220104, end: 20220109

REACTIONS (1)
  - Ascites [Recovered/Resolved]

NARRATIVE: CASE EVENT DATE: 20220131
